FAERS Safety Report 8596221-7 (Version None)
Quarter: 2012Q3

REPORT INFORMATION
  Report Type: 
  Country: None (occurrence: None)
  Receive Date: 20120815
  Receipt Date: 20120807
  Transmission Date: 20120928
  Serious: Yes (Hospitalization)
  Sender: FDA-Public Use
  Company Number: DE-GLAXOSMITHKLINE-B0822306A

PATIENT
  Sex: Male
  Weight: 83 kg

DRUGS (2)
  1. PAZOPANIB [Suspect]
     Indication: SARCOMA METASTATIC
     Route: 048
     Dates: start: 20120716, end: 20120806
  2. MORPHINE [Concomitant]
     Indication: PAIN
     Dates: start: 20120710, end: 20120806

REACTIONS (1)
  - GENERAL PHYSICAL HEALTH DETERIORATION [None]
